FAERS Safety Report 13774100 (Version 2)
Quarter: 2017Q4

REPORT INFORMATION
  Report Type: Spontaneous
  Country: US (occurrence: US)
  Receive Date: 20170720
  Receipt Date: 20171218
  Transmission Date: 20180320
  Serious: No
  Sender: FDA-Public Use
  Company Number: US-ELI_LILLY_AND_COMPANY-US201707003096

PATIENT
  Age: 58 Year
  Sex: Male

DRUGS (5)
  1. ATORVASTATIN CALCIUM. [Concomitant]
     Active Substance: ATORVASTATIN CALCIUM
     Indication: PRODUCT USED FOR UNKNOWN INDICATION
  2. CIALIS [Suspect]
     Active Substance: TADALAFIL
     Indication: BENIGN PROSTATIC HYPERPLASIA
     Dosage: 10 MG, UNKNOWN
     Route: 048
  3. CIALIS [Suspect]
     Active Substance: TADALAFIL
     Dosage: 20 MG, UNKNOWN
     Route: 048
  4. CIALIS [Suspect]
     Active Substance: TADALAFIL
     Dosage: 15 MG, UNKNOWN
     Route: 048
  5. CIALIS [Suspect]
     Active Substance: TADALAFIL
     Indication: ERECTILE DYSFUNCTION
     Dosage: 5 MG, UNKNOWN
     Route: 048
     Dates: start: 20170629

REACTIONS (9)
  - Vertigo [Recovered/Resolved]
  - Drug ineffective [Unknown]
  - Myalgia [Recovered/Resolved]
  - Back pain [Unknown]
  - Headache [Recovered/Resolved]
  - Sciatica [Unknown]
  - Mood altered [Unknown]
  - Pain in extremity [Unknown]
  - Dizziness [Recovered/Resolved]
